FAERS Safety Report 19010204 (Version 2)
Quarter: 2022Q1

REPORT INFORMATION
  Report Type: Spontaneous
  Country: US (occurrence: US)
  Receive Date: 20210315
  Receipt Date: 20220103
  Transmission Date: 20220424
  Serious: Yes (Death, Life-Threatening, Hospitalization, Other)
  Sender: FDA-Public Use
  Company Number: US-AMGEN-USASP2021037067

PATIENT

DRUGS (3)
  1. CARFILZOMIB [Suspect]
     Active Substance: CARFILZOMIB
     Indication: Plasma cell myeloma
     Dosage: UNK (20-36 MG/M2)
     Route: 065
  2. CYCLOPHOSPHAMIDE [Concomitant]
     Active Substance: CYCLOPHOSPHAMIDE
     Indication: Plasma cell myeloma
     Dosage: UNK
  3. DEXAMETHASONE [Concomitant]
     Active Substance: DEXAMETHASONE
     Indication: Plasma cell myeloma
     Dosage: UNK

REACTIONS (14)
  - Bacteraemia [Unknown]
  - Death [Fatal]
  - Unevaluable event [Unknown]
  - Plasma cell myeloma [Unknown]
  - Thrombocytopenia [Unknown]
  - Anaemia [Unknown]
  - Neutropenia [Unknown]
  - Febrile neutropenia [Unknown]
  - Pneumonia [Unknown]
  - Sepsis [Unknown]
  - Cardiac failure congestive [Unknown]
  - Therapy partial responder [Unknown]
  - Off label use [Unknown]
  - Viral infection [Unknown]
